FAERS Safety Report 19169125 (Version 1)
Quarter: 2021Q2

REPORT INFORMATION
  Report Type: Spontaneous
  Country: US (occurrence: US)
  Receive Date: 20210420
  Receipt Date: 20210420
  Transmission Date: 20210717
  Serious: Yes (Hospitalization, Other)
  Sender: FDA-Public Use
  Company Number: None

PATIENT
  Age: 33 Year
  Sex: Male

DRUGS (1)
  1. LEGION FORGE [Suspect]
     Active Substance: DIETARY SUPPLEMENT
     Indication: NUTRITIONAL SUPPLEMENTATION
     Dosage: ?          QUANTITY:8 DF DOSAGE FORM;OTHER FREQUENCY:15 MIN BEFORE WORK;?
     Route: 048
     Dates: start: 20160130, end: 20170321

REACTIONS (1)
  - Traumatic shock [None]

NARRATIVE: CASE EVENT DATE: 20170321
